FAERS Safety Report 12643143 (Version 2)
Quarter: 2016Q3

REPORT INFORMATION
  Report Type: Report from Study
  Country: US (occurrence: US)
  Receive Date: 20160811
  Receipt Date: 20160826
  Transmission Date: 20161109
  Serious: Yes (Hospitalization, Other)
  Sender: FDA-Public Use
  Company Number: PHEH2016US019982

PATIENT
  Age: 45 Year
  Sex: Male
  Weight: 70.9 kg

DRUGS (4)
  1. GABAPENTIN. [Concomitant]
     Active Substance: GABAPENTIN
     Indication: PRODUCT USED FOR UNKNOWN INDICATION
     Dosage: UNK
     Route: 065
  2. TRAMADOL. [Concomitant]
     Active Substance: TRAMADOL
     Indication: PRODUCT USED FOR UNKNOWN INDICATION
     Dosage: UNK
     Route: 065
  3. BACLOFEN. [Concomitant]
     Active Substance: BACLOFEN
     Indication: PRODUCT USED FOR UNKNOWN INDICATION
     Dosage: UNK
     Route: 065
  4. GILENYA [Suspect]
     Active Substance: FINGOLIMOD HYDROCHLORIDE
     Indication: MULTIPLE SCLEROSIS
     Dosage: 0.5 MG, QD
     Route: 048
     Dates: start: 201511

REACTIONS (27)
  - Escherichia urinary tract infection [Recovered/Resolved]
  - Pain in extremity [Unknown]
  - Sepsis [Recovered/Resolved]
  - Neutrophil count decreased [Unknown]
  - Vascular insufficiency [Unknown]
  - Feeling abnormal [Unknown]
  - Dysphagia [Unknown]
  - Haemoptysis [Unknown]
  - Respiratory tract infection [Recovering/Resolving]
  - Atelectasis [Unknown]
  - Haemoglobin decreased [Unknown]
  - Pulmonary embolism [Unknown]
  - Deep vein thrombosis [Unknown]
  - Pneumonia [Unknown]
  - Body temperature increased [Unknown]
  - Blood chloride increased [Unknown]
  - Lymphocyte count decreased [Unknown]
  - Back pain [Unknown]
  - Productive cough [Unknown]
  - Blood creatinine decreased [Unknown]
  - Fibrin D dimer increased [Unknown]
  - Platelet count decreased [Unknown]
  - Red blood cell count decreased [Unknown]
  - Depression [Unknown]
  - Posture abnormal [Unknown]
  - Facial paresis [Unknown]
  - Blood bicarbonate decreased [Unknown]

NARRATIVE: CASE EVENT DATE: 201606
